FAERS Safety Report 9242245 (Version 1)
Quarter: 2013Q2

REPORT INFORMATION
  Report Type: Spontaneous
  Country: TR (occurrence: TR)
  Receive Date: 20130419
  Receipt Date: 20130419
  Transmission Date: 20140414
  Serious: Yes (Other)
  Sender: FDA-Public Use
  Company Number: PHHY2013TR037147

PATIENT
  Age: 44 Year
  Sex: Female

DRUGS (3)
  1. VENLAFAXINE [Suspect]
     Indication: MIGRAINE
     Dosage: 37.5 MG, QD
  2. VENLAFAXINE [Suspect]
     Indication: DEPRESSIVE SYMPTOM
     Dosage: 75 MG, QD
  3. VENLAFAXINE [Suspect]
     Dosage: 37.5 MG, QD

REACTIONS (3)
  - Restless legs syndrome [Recovered/Resolved]
  - Sensory disturbance [Recovered/Resolved]
  - Sleep disorder [Recovered/Resolved]
